FAERS Safety Report 17452232 (Version 8)
Quarter: 2020Q2

REPORT INFORMATION
  Report Type: Report from Study
  Country: AT (occurrence: AT)
  Receive Date: 20200224
  Receipt Date: 20200501
  Transmission Date: 20200713
  Serious: Yes (Death, Hospitalization)
  Sender: FDA-Public Use
  Company Number: AT-EISAI MEDICAL RESEARCH-EC-2020-070579

PATIENT
  Age: 77 Year
  Sex: Female
  Weight: 83 kg

DRUGS (26)
  1. ATORVASTATIN [Concomitant]
     Active Substance: ATORVASTATIN
     Dates: start: 201701, end: 20200222
  2. BLOPRESS [Concomitant]
     Active Substance: CANDESARTAN CILEXETIL
     Dates: start: 20200212, end: 20200218
  3. CALCIMAGON D3 [Concomitant]
     Active Substance: CALCIUM\CHOLECALCIFEROL
     Dates: start: 200701, end: 20200218
  4. THROMBO ASS [Concomitant]
     Active Substance: ASPIRIN
     Dates: start: 201701, end: 20200219
  5. PARIET [Concomitant]
     Active Substance: RABEPRAZOLE SODIUM
     Dates: start: 201701, end: 20200225
  6. EUTHYROX [Concomitant]
     Active Substance: LEVOTHYROXINE SODIUM
     Dates: start: 201810, end: 20200219
  7. ELO MEL [Concomitant]
     Dates: start: 20200121, end: 20200210
  8. LOVENOX [Concomitant]
     Active Substance: ENOXAPARIN SODIUM
     Dates: start: 202001, end: 20200221
  9. LYRICA [Concomitant]
     Active Substance: PREGABALIN
     Dates: start: 201901, end: 20200313
  10. SELEXID [Concomitant]
     Dates: start: 20200212, end: 20200215
  11. PAROXAT [Concomitant]
     Active Substance: PAROXETINE HYDROCHLORIDE
     Dates: start: 200901, end: 20200313
  12. GYNO-PEVARYL [Concomitant]
     Active Substance: ECONAZOLE NITRATE
     Dates: start: 202002, end: 202002
  13. PEMBROLIZUMAB. [Suspect]
     Active Substance: PEMBROLIZUMAB
     Indication: ENDOMETRIAL CANCER
     Route: 041
     Dates: start: 20200210, end: 20200210
  14. HYDAL [Concomitant]
     Active Substance: HYDROMORPHONE HYDROCHLORIDE
     Dates: start: 20200121, end: 20200308
  15. ACTONEL [Concomitant]
     Active Substance: RISEDRONATE SODIUM
     Dates: start: 200701, end: 20200218
  16. LASIX [Concomitant]
     Active Substance: FUROSEMIDE
     Dates: start: 200901, end: 20200218
  17. BETMIGA [Concomitant]
     Active Substance: MIRABEGRON
     Dates: start: 202001, end: 20200313
  18. FORTECORTIN [Concomitant]
     Active Substance: DEXAMETHASONE
     Dates: start: 20200121, end: 20200210
  19. LENVATINIB [Suspect]
     Active Substance: LENVATINIB
     Indication: ENDOMETRIAL CANCER
     Route: 048
     Dates: start: 20200210
  20. BROMAZEPAM [Concomitant]
     Active Substance: BROMAZEPAM
     Dates: start: 200901, end: 20200313
  21. NOVALGIN [Concomitant]
     Dates: start: 20200121, end: 20200308
  22. CETIRIZINE HYDROCHLORIDE. [Concomitant]
     Active Substance: CETIRIZINE HYDROCHLORIDE
     Dates: start: 20200121, end: 20200211
  23. PEMBROLIZUMAB. [Suspect]
     Active Substance: PEMBROLIZUMAB
     Route: 041
     Dates: start: 20200302, end: 20200302
  24. PROCORALAN [Concomitant]
     Active Substance: IVABRADINE
     Dates: start: 201701, end: 20200317
  25. HYDAL [Concomitant]
     Active Substance: HYDROMORPHONE HYDROCHLORIDE
     Dates: start: 20200121, end: 20200224
  26. DIFLUCAN [Concomitant]
     Active Substance: FLUCONAZOLE
     Dates: start: 202002, end: 202002

REACTIONS (1)
  - Dehydration [Recovered/Resolved]

NARRATIVE: CASE EVENT DATE: 20200215
